FAERS Safety Report 7942820 (Version 3)
Quarter: 2013Q1

REPORT INFORMATION
  Report Type: Spontaneous
  Country: CA (occurrence: CA)
  Receive Date: 20110512
  Receipt Date: 20130220
  Transmission Date: 20140127
  Serious: Yes (Other)
  Sender: FDA-Public Use
  Company Number: PHHY2011CA23401

PATIENT
  Age: 76 Year
  Sex: Female

DRUGS (9)
  1. ACLASTA [Suspect]
     Indication: OSTEOPOROSIS
     Dosage: 5 MG, YEARLY
     Route: 042
     Dates: start: 20110222
  2. ACLASTA [Suspect]
     Dosage: UNK UKN, UNK
     Route: 042
     Dates: start: 20120413
  3. HYDREA [Concomitant]
     Dosage: 500
  4. PROZAC [Concomitant]
     Dosage: 20 - 2 DAILY
  5. OXYTROL [Concomitant]
     Dosage: 36 SKIN PATCHES 2 PER WEEK
  6. MODULON [Concomitant]
     Dosage: 200 TID PRN
  7. CRESTOR [Concomitant]
     Dosage: 5 HS
  8. EURO-D [Concomitant]
     Dosage: 400 BID
  9. RIVOTRIL [Concomitant]
     Dosage: 0.5 - 1/2 TABLET TID PRN

REACTIONS (12)
  - Viraemia [Recovered/Resolved]
  - Nasopharyngitis [Recovered/Resolved]
  - Malaise [Recovered/Resolved]
  - Pyrexia [Recovered/Resolved]
  - Gingival pain [Recovered/Resolved]
  - Oral pain [Recovered/Resolved]
  - Chills [Recovered/Resolved]
  - Fall [Unknown]
  - Fear of falling [Unknown]
  - Depression [Unknown]
  - Muscular weakness [Unknown]
  - Fatigue [Unknown]
